FAERS Safety Report 7679318-5 (Version None)
Quarter: 2011Q3

REPORT INFORMATION
  Report Type: 
  Country: None (occurrence: None)
  Receive Date: 20110808
  Receipt Date: 20110729
  Transmission Date: 20111222
  Serious: Yes (Hospitalization)
  Sender: FDA-Public Use
  Company Number: WAES1107USA02923

PATIENT
  Age: 11 Year
  Sex: Male
  Weight: 63.9572 kg

DRUGS (2)
  1. MK-2206 [Concomitant]
  2. DECADRON [Suspect]
     Dosage: /PO
     Route: 048

REACTIONS (4)
  - HYPONATRAEMIA [None]
  - FLUID OVERLOAD [None]
  - NEPHROLITHIASIS [None]
  - BACTERIAL TEST POSITIVE [None]
